FAERS Safety Report 6009044-X (Version None)
Quarter: 2008Q4

REPORT INFORMATION
  Report Type: 
  Country: None (occurrence: None)
  Receive Date: 20081216
  Receipt Date: 20081203
  Transmission Date: 20090506
  Serious: Yes (Other)
  Sender: FDA-Public Use
  Company Number: DSU-2008-02119

PATIENT
  Age: 71 Year
  Sex: Male
  Weight: 92.9874 kg

DRUGS (5)
  1. BENICAR HCT (HYDROCHLOROTHIAZIDE, OLMESARTAN MEDOXOMIL)  (HYDROCHLOROT [Suspect]
     Indication: HYPERTENSION
     Dosage: PER ORAL
     Route: 048
     Dates: start: 20040101, end: 20081101
  2. PREVACID (LANSOPRAZOLE) (LANSOPRAZOLE) [Concomitant]
  3. DILTIAZEM CD          (DILTIAZEM HYDROCHLORIDE) [Concomitant]
  4. NIASPAN [Concomitant]
  5. ASPIRIN [Concomitant]

REACTIONS (3)
  - ASTHMA [None]
  - BLOOD URIC ACID INCREASED [None]
  - PARKINSON'S DISEASE [None]
